FAERS Safety Report 9565668 (Version 2)
Quarter: 2014Q1

REPORT INFORMATION
  Report Type: Report from Study
  Country: US (occurrence: US)
  Receive Date: 20130930
  Receipt Date: 20140124
  Transmission Date: 20141002
  Serious: Yes (Congenital Anomaly, Other)
  Sender: FDA-Public Use
  Company Number: US-GILEAD-2013-0083980

PATIENT
  Sex: Male
  Weight: 3.49 kg

DRUGS (5)
  1. EMTRICITABINE/TENOFOVIR DISOPROXIL FUMARATE [Suspect]
     Indication: HIV INFECTION
     Dosage: UNK
     Route: 064
     Dates: end: 20111026
  2. NORVIR [Suspect]
     Indication: HIV INFECTION
     Dosage: UNK
     Route: 064
     Dates: end: 20111026
  3. PREZISTA /05513801/ [Suspect]
     Indication: HIV INFECTION
     Dosage: UNK
     Route: 064
     Dates: end: 20111026
  4. RETROVIR [Suspect]
     Indication: HIV INFECTION
     Dosage: UNK
     Route: 065
     Dates: start: 20111026, end: 20111026
  5. ISENTRESS [Suspect]
     Indication: HIV INFECTION
     Dosage: UNK
     Route: 064
     Dates: start: 20111018, end: 20111026

REACTIONS (2)
  - Congenital mitral valve incompetence [Unknown]
  - Foetal exposure during pregnancy [Recovered/Resolved]
